FAERS Safety Report 7037206-1 (Version None)
Quarter: 2010Q4

REPORT INFORMATION
  Report Type: 
  Country: None (occurrence: None)
  Receive Date: 20101011
  Receipt Date: 20100929
  Transmission Date: 20110411
  Serious: Yes (Other)
  Sender: FDA-Public Use
  Company Number: US-ROCHE-683620

PATIENT
  Sex: Female
  Weight: 39.5 kg

DRUGS (2)
  1. ACCUTANE [Suspect]
     Indication: ACNE
     Dosage: STRENGTH: 40 MG AND 20 MG
     Route: 048
     Dates: start: 19980130, end: 19980201
  2. ACCUTANE [Suspect]
     Route: 048
     Dates: start: 20010425, end: 20010824

REACTIONS (5)
  - ANAL FISSURE [None]
  - CROHN'S DISEASE [None]
  - INFLAMMATORY BOWEL DISEASE [None]
  - INTESTINAL HAEMORRHAGE [None]
  - ORAL HERPES [None]
